FAERS Safety Report 23370410 (Version 1)
Quarter: 2024Q1

REPORT INFORMATION
  Report Type: Spontaneous
  Country: US (occurrence: US)
  Receive Date: 20240105
  Receipt Date: 20240105
  Transmission Date: 20240410
  Serious: No
  Sender: FDA-Public Use
  Company Number: US-SA-SAC20231228000625

PATIENT
  Sex: Female
  Weight: 90.72 kg

DRUGS (2)
  1. DUPIXENT [Interacting]
     Active Substance: DUPILUMAB
     Indication: Dermatitis atopic
     Dosage: 300 MG, QOW
     Route: 058
  2. OPZELURA [Interacting]
     Active Substance: RUXOLITINIB PHOSPHATE
     Indication: Rash

REACTIONS (2)
  - Rash [Unknown]
  - Labelled drug-drug interaction medication error [Unknown]
